FAERS Safety Report 7395047-X (Version None)
Quarter: 2011Q2

REPORT INFORMATION
  Report Type: 
  Country: None (occurrence: None)
  Receive Date: 20110405
  Receipt Date: 20110323
  Transmission Date: 20111010
  Serious: No
  Sender: FDA-Public Use
  Company Number: US-CELGENEUS-163-21880-11021692

PATIENT
  Sex: Female
  Weight: 83.18 kg

DRUGS (1)
  1. REVLIMID [Suspect]
     Indication: MULTIPLE MYELOMA
     Dosage: 10 MILLIGRAM
     Route: 048
     Dates: start: 20100809

REACTIONS (3)
  - EAR CONGESTION [None]
  - SINUS CONGESTION [None]
  - RASH [None]
